FAERS Safety Report 15769120 (Version 1)
Quarter: 2018Q4

REPORT INFORMATION
  Report Type: Spontaneous
  Country: US (occurrence: US)
  Receive Date: 20181228
  Receipt Date: 20181228
  Transmission Date: 20190205
  Serious: Yes (Other)
  Sender: FDA-Public Use
  Company Number: US-SUN PHARMACEUTICAL INDUSTRIES LTD-2018R1-194819

PATIENT
  Age: 18 Year
  Sex: Male

DRUGS (1)
  1. ACETYLSALICYLIC ACID [Suspect]
     Active Substance: ASPIRIN
     Indication: ANTIPLATELET THERAPY
     Dosage: UNKNOWN
     Route: 065

REACTIONS (3)
  - Embolic cerebral infarction [Recovered/Resolved]
  - Brain stem ischaemia [Recovered/Resolved]
  - Cerebellar ischaemia [Recovered/Resolved]
